FAERS Safety Report 7116877-5 (Version None)
Quarter: 2010Q4

REPORT INFORMATION
  Report Type: 
  Country: None (occurrence: None)
  Receive Date: 20101122
  Receipt Date: 20101114
  Transmission Date: 20110411
  Serious: Yes (Death, Hospitalization)
  Sender: FDA-Public Use
  Company Number: IN-ELI_LILLY_AND_COMPANY-IN201011003839

PATIENT
  Age: 15 Year
  Sex: Male

DRUGS (2)
  1. XIGRIS [Suspect]
     Indication: SEPSIS
     Dosage: UNK, UNKNOWN
     Route: 065
     Dates: start: 20101113, end: 20101113
  2. ANTIBIOTICS [Concomitant]
     Indication: SEPSIS
     Dosage: UNK, UNKNOWN
     Route: 065
     Dates: start: 20101113

REACTIONS (3)
  - INTERNATIONAL NORMALISED RATIO INCREASED [None]
  - MULTI-ORGAN FAILURE [None]
  - SEPSIS [None]
